FAERS Safety Report 8605403-7 (Version None)
Quarter: 2012Q3

REPORT INFORMATION
  Report Type: 
  Country: None (occurrence: None)
  Receive Date: 20120820
  Receipt Date: 20120810
  Transmission Date: 20120928
  Serious: Yes (Death, Hospitalization)
  Sender: FDA-Public Use
  Company Number: US-SANOFI-AVENTIS-2012SA042595

PATIENT
  Age: 73 Year
  Sex: Female

DRUGS (15)
  1. ALENDRONATE SODIUM [Concomitant]
  2. VICODIN [Suspect]
     Dosage: 500/5MG 1-2 TABS PRN
     Route: 048
  3. POTASSIUM CHLORIDE [Concomitant]
     Dates: start: 20111215
  4. METOPROLOL TARTRATE [Concomitant]
     Route: 048
  5. COUMADIN [Concomitant]
  6. LASIX [Concomitant]
     Route: 048
  7. IRON [Concomitant]
     Route: 048
  8. MULTAQ [Suspect]
     Route: 065
     Dates: start: 20110701
  9. TYLENOL [Suspect]
     Dosage: 2 TABS 500MG OR 650MG (1000MG) (1300MG) PRN
     Route: 048
  10. ASPIRIN [Concomitant]
     Route: 048
  11. DILTIAZEM [Concomitant]
     Route: 048
  12. DILTIAZEM [Concomitant]
     Dates: start: 20111221
  13. VITAMIN D [Concomitant]
  14. VITAMIN TAB [Concomitant]
  15. CALCIUM [Concomitant]

REACTIONS (11)
  - ACUTE HEPATIC FAILURE [None]
  - METABOLIC ACIDOSIS [None]
  - URINARY TRACT INFECTION [None]
  - PNEUMONIA [None]
  - COAGULOPATHY [None]
  - RENAL FAILURE ACUTE [None]
  - DIARRHOEA [None]
  - ACUTE RESPIRATORY FAILURE [None]
  - ANTINUCLEAR ANTIBODY POSITIVE [None]
  - ATRIAL FIBRILLATION [None]
  - HEPATIC ENCEPHALOPATHY [None]
